FAERS Safety Report 5929020-2 (Version None)
Quarter: 2008Q4

REPORT INFORMATION
  Report Type: 
  Country: None (occurrence: None)
  Receive Date: 20081024
  Receipt Date: 20081016
  Transmission Date: 20090506
  Serious: Yes (Other)
  Sender: FDA-Public Use
  Company Number: US-JNJFOC-20081000628

PATIENT
  Age: 20 Year
  Sex: Male

DRUGS (1)
  1. CONCERTA [Suspect]
     Indication: DRUG USE FOR UNKNOWN INDICATION
     Route: 048

REACTIONS (4)
  - HOMICIDE [None]
  - LOSS OF CONSCIOUSNESS [None]
  - OVERDOSE [None]
  - PSYCHOTIC DISORDER [None]
